FAERS Safety Report 5964476-0 (Version None)
Quarter: 2008Q4

REPORT INFORMATION
  Report Type: 
  Country: None (occurrence: None)
  Receive Date: 20081122
  Receipt Date: 20081122
  Transmission Date: 20090506
  Serious: No
  Sender: FDA-Public Use
  Company Number: None

PATIENT
  Sex: Female
  Weight: 74.8435 kg

DRUGS (1)
  1. LIDOCAINE [Suspect]
     Indication: BACK PAIN
     Dosage: 1 PATCH 12 HRS
     Dates: start: 20081006, end: 20081024

REACTIONS (1)
  - CONFUSIONAL STATE [None]
